FAERS Safety Report 22380335 (Version 3)
Quarter: 2023Q2

REPORT INFORMATION
  Report Type: Spontaneous
  Country: US (occurrence: US)
  Receive Date: 20230529
  Receipt Date: 20230529
  Transmission Date: 20230721
  Serious: Yes (Other)
  Sender: FDA-Public Use
  Company Number: US-VER-202300087

PATIENT
  Sex: Female

DRUGS (1)
  1. TRELSTAR [Suspect]
     Active Substance: TRIPTORELIN PAMOATE
     Indication: Metastatic neoplasm
     Route: 065
     Dates: start: 201810

REACTIONS (5)
  - Disability [Unknown]
  - Fall [Unknown]
  - Condition aggravated [Unknown]
  - Pain [Unknown]
  - Swelling [Unknown]
